FAERS Safety Report 6406881-4 (Version None)
Quarter: 2009Q4

REPORT INFORMATION
  Report Type: 
  Country: None (occurrence: None)
  Receive Date: 20091020
  Receipt Date: 20091013
  Transmission Date: 20100525
  Serious: Yes (Death)
  Sender: FDA-Public Use
  Company Number: CL-ROCHE-662804

PATIENT
  Age: 67 Year
  Sex: Male

DRUGS (1)
  1. MIRCERA [Suspect]
     Indication: ANAEMIA
     Route: 065

REACTIONS (1)
  - DIABETES MELLITUS [None]
